FAERS Safety Report 9748310 (Version 1)
Quarter: 2013Q4

REPORT INFORMATION
  Report Type: Spontaneous
  Country: JP (occurrence: None)
  Receive Date: 20131206
  Receipt Date: 20131206
  Transmission Date: 20140711
  Serious: Yes (Other)
  Sender: FDA-Public Use
  Company Number: SYM-2013-13464

PATIENT
  Age: 63 Year
  Sex: Male

DRUGS (3)
  1. FLUOROURACIL [Suspect]
     Indication: OESOPHAGEAL CARCINOMA
  2. DOCETAXEL [Suspect]
     Indication: OESOPHAGEAL CARCINOMA
  3. NEDAPLATIN [Suspect]
     Indication: OESOPHAGEAL CARCINOMA

REACTIONS (1)
  - White blood cell count decreased [None]
